FAERS Safety Report 13959131 (Version 2)
Quarter: 2017Q4

REPORT INFORMATION
  Report Type: Spontaneous
  Country: US (occurrence: US)
  Receive Date: 20170912
  Receipt Date: 20171006
  Transmission Date: 20180320
  Serious: No
  Sender: FDA-Public Use
  Company Number: US-JNJFOC-20170903422

PATIENT
  Age: 46 Year
  Sex: Female
  Weight: 83.92 kg

DRUGS (2)
  1. ZYRTEC [Suspect]
     Active Substance: CETIRIZINE HYDROCHLORIDE
     Indication: URTICARIA
     Route: 048
  2. ZYRTEC [Suspect]
     Active Substance: CETIRIZINE HYDROCHLORIDE
     Indication: PROPHYLAXIS
     Route: 048

REACTIONS (3)
  - Therapeutic response unexpected [Unknown]
  - Blister [Not Recovered/Not Resolved]
  - Product use in unapproved indication [Not Recovered/Not Resolved]
